FAERS Safety Report 18624975 (Version 6)
Quarter: 2025Q2

REPORT INFORMATION
  Report Type: Report from Study
  Country: BR (occurrence: BR)
  Receive Date: 20201216
  Receipt Date: 20250425
  Transmission Date: 20250717
  Serious: Yes (Life-Threatening)
  Sender: TAKEDA
  Company Number: BR-TAKEDA-BR202011806

PATIENT
  Age: 5 Year
  Sex: Male
  Weight: 21 kg

DRUGS (5)
  1. IDURSULFASE [Suspect]
     Active Substance: IDURSULFASE
     Indication: Mucopolysaccharidosis II
     Dosage: 2 DOSAGE FORM, 1/WEEK
     Dates: start: 2014
  2. IDURSULFASE [Suspect]
     Active Substance: IDURSULFASE
     Dosage: 2 DOSAGE FORM, 1/WEEK
     Dates: start: 201905
  3. IDURSULFASE [Suspect]
     Active Substance: IDURSULFASE
     Dosage: 2 DOSAGE FORM, 1/WEEK
     Dates: start: 201908
  4. IDURSULFASE [Suspect]
     Active Substance: IDURSULFASE
  5. IDURSULFASE [Suspect]
     Active Substance: IDURSULFASE
     Dosage: UNK UNK, 1/WEEK

REACTIONS (22)
  - Adenoidal disorder [Unknown]
  - Agitation [Unknown]
  - Rhinorrhoea [Unknown]
  - Inappropriate schedule of product administration [Unknown]
  - Product dose omission issue [Unknown]
  - Product administration error [Unknown]
  - Ear infection [Unknown]
  - Vomiting [Unknown]
  - Pyrexia [Unknown]
  - Nervousness [Unknown]
  - Stress [Unknown]
  - Pain in extremity [Unknown]
  - Laziness [Unknown]
  - Secretion discharge [Unknown]
  - Growth disorder [Unknown]
  - Fall [Unknown]
  - Head discomfort [Unknown]
  - Weight decreased [Unknown]
  - Cognitive disorder [Unknown]
  - Restlessness [Unknown]
  - Weight increased [Unknown]
  - Product prescribing issue [Unknown]

NARRATIVE: CASE EVENT DATE: 20200707
